FAERS Safety Report 4550427-2 (Version None)
Quarter: 2004Q4

REPORT INFORMATION
  Report Type: 
  Country: None (occurrence: None)
  Receive Date: 20041227
  Receipt Date: 20041130
  Transmission Date: 20050328
  Serious: No
  Sender: FDA-Public Use
  Company Number: 04P-163-0281971-00

PATIENT
  Age: 47 Year
  Sex: Female
  Weight: 68.0396 kg

DRUGS (9)
  1. HUMIRA [Suspect]
     Indication: RHEUMATOID ARTHRITIS
     Dosage: SEE IMAGE
     Route: 058
     Dates: start: 20031001, end: 20040301
  2. METHOTRECATE SODIUM [Concomitant]
  3. PREDNISONE [Concomitant]
  4. SULINDAC [Concomitant]
  5. FOLINIC ACID [Concomitant]
  6. PROPOXY [Concomitant]
  7. AMITRIPTYLINE [Concomitant]
  8. BUDESONIDE [Concomitant]
  9. CYCLOBENZAPRINE HYDROCHLORIDE [Concomitant]

REACTIONS (3)
  - HERPES ZOSTER [None]
  - NASOPHARYNGITIS [None]
  - RASH [None]
